FAERS Safety Report 16133075 (Version 1)
Quarter: 2019Q1

REPORT INFORMATION
  Report Type: Spontaneous
  Country: US (occurrence: US)
  Receive Date: 20190329
  Receipt Date: 20190329
  Transmission Date: 20190418
  Serious: No
  Sender: FDA-Public Use
  Company Number: US-PFIZER INC-2019135465

PATIENT
  Age: 68 Year
  Sex: Female
  Weight: 87.53 kg

DRUGS (6)
  1. CARDIZEM CD [Suspect]
     Active Substance: DILTIAZEM HYDROCHLORIDE
     Dosage: UNK
  2. ZOCOR [Suspect]
     Active Substance: SIMVASTATIN
     Dosage: UNK
  3. FENTANYL CITRATE. [Suspect]
     Active Substance: FENTANYL CITRATE
     Dosage: UNK
  4. CRESTOR [Suspect]
     Active Substance: ROSUVASTATIN CALCIUM
     Dosage: UNK
  5. CYMBALTA [Suspect]
     Active Substance: DULOXETINE HYDROCHLORIDE
     Dosage: UNK
  6. TRICOR [ADENOSINE] [Suspect]
     Active Substance: ADENOSINE
     Dosage: UNK

REACTIONS (1)
  - Drug hypersensitivity [Unknown]
